FAERS Safety Report 5183559-9 (Version None)
Quarter: 2006Q4

REPORT INFORMATION
  Report Type: 
  Country: None (occurrence: None)
  Receive Date: 20061220
  Receipt Date: 20060119
  Transmission Date: 20070319
  Serious: No
  Sender: FDA-Public Use
  Company Number: 2006004335

PATIENT
  Age: 55 Year
  Sex: Female

DRUGS (2)
  1. NICODERM CQ [Suspect]
     Dates: start: 20051201
  2. NICOTROL [Suspect]
     Route: 055
     Dates: start: 20051201

REACTIONS (1)
  - PHARYNGOLARYNGEAL PAIN [None]
